FAERS Safety Report 16723730 (Version 1)
Quarter: 2019Q3

REPORT INFORMATION
  Report Type: Spontaneous
  Country: DE (occurrence: DE)
  Receive Date: 20190821
  Receipt Date: 20190821
  Transmission Date: 20191005
  Serious: Yes (Hospitalization)
  Sender: FDA-Public Use
  Company Number: DE-TEVA-2019-DE-1094113

PATIENT
  Age: 73 Year
  Sex: Male
  Weight: 90 kg

DRUGS (8)
  1. THIAMIN (VITAMIN B1) [Concomitant]
     Dosage: NK MG, 1-0-1-0
  2. ACETYLSALICYLSAEURE [Concomitant]
     Active Substance: ASPIRIN
     Dosage: 100 MG, 0-1-0-0
  3. IBUPROFEN. [Concomitant]
     Active Substance: IBUPROFEN
     Dosage: 600 MG, IF NEEDED
  4. LACTULOSE. [Concomitant]
     Active Substance: LACTULOSE
     Dosage: NK ML, 1-1-1-0
  5. LEVOTHYROXIN-NATRIUM [Concomitant]
     Active Substance: LEVOTHYROXINE SODIUM
     Dosage: 100 UG, 1-0-0-0
  6. SEVELAMER [Concomitant]
     Active Substance: SEVELAMER
     Dosage: 2.4 G, 1-1-1-0
  7. CALCITRIOL. [Concomitant]
     Active Substance: CALCITRIOL
     Dosage: 0.25 UG, 1-0-0-0
  8. PROPRANOLOL [Suspect]
     Active Substance: PROPRANOLOL HYDROCHLORIDE
     Dosage: 10 MG, 1-0-1-0

REACTIONS (1)
  - Pain [Unknown]

NARRATIVE: CASE EVENT DATE: 20180106
